FAERS Safety Report 21814205 (Version 1)
Quarter: 2023Q1

REPORT INFORMATION
  Report Type: Report from Study
  Country: US (occurrence: US)
  Receive Date: 20230104
  Receipt Date: 20230104
  Transmission Date: 20230418
  Serious: No
  Sender: FDA-Public Use
  Company Number: US-ABBVIE-4211904

PATIENT
  Sex: Male

DRUGS (21)
  1. SKYRIZI [Suspect]
     Active Substance: RISANKIZUMAB-RZAA
     Indication: Psoriasis
     Dosage: FORM STRENGTH: 150 MILLIGRAM?FREQUENCY TEXT: WEEK 0
     Route: 058
  2. SKYRIZI [Suspect]
     Active Substance: RISANKIZUMAB-RZAA
     Dosage: FORM STRENGTH: 150 MILLIGRAM?FREQUENCY TEXT: WEEK 4
     Route: 058
  3. SKYRIZI [Suspect]
     Active Substance: RISANKIZUMAB-RZAA
     Dosage: FORM STRENGTH: 150 MILLIGRAM
     Route: 058
  4. GLIPIZIDE ER TAB 2.5MG [Concomitant]
     Indication: Product used for unknown indication
     Route: 048
  5. METFORMIN TAB 1000MG [Concomitant]
     Indication: Product used for unknown indication
     Dosage: FORM STRENGTH: 1000 MILLIGRAM
     Route: 048
  6. METHYLPRED TAB 4MG [Concomitant]
     Indication: Product used for unknown indication
     Dosage: FORM STRENGTH: 4 MILLIGRAM
     Route: 048
  7. IBUPROFEN [Concomitant]
     Active Substance: IBUPROFEN
     Indication: Product used for unknown indication
     Dosage: FORM STRENGTH: 800 MILLIGRAM
     Route: 048
  8. SERTRALINE TAB 50MG [Concomitant]
     Indication: Product used for unknown indication
     Dosage: FORM STRENGTH: 50 MILLIGRAM
     Route: 048
  9. TALTZ INJ 80MG/ML [Concomitant]
     Indication: Product used for unknown indication
     Dosage: FORM STRENGTH: 80 MILLIGRAM
     Route: 050
  10. TRULICITY INJ 0.75/0.5 [Concomitant]
     Indication: Product used for unknown indication
     Dosage: 0.75/0.5
     Route: 050
  11. TRULICITY INJ 1.5/0.5 [Concomitant]
     Indication: Product used for unknown indication
     Dosage: 1.5/0.5
     Route: 050
  12. LIDOCAINE PAD 5% [Concomitant]
     Indication: Product used for unknown indication
     Dosage: FORM STRENGTH: 5 PERCENT
  13. ATORVASTATIN TAB 10MG [Concomitant]
     Indication: Product used for unknown indication
     Dosage: FORM STRENGTH: 10 MILLIGRAM
     Route: 048
  14. VEMLIDY [Concomitant]
     Active Substance: TENOFOVIR ALAFENAMIDE FUMARATE
     Indication: Product used for unknown indication
     Dosage: FORM STRENGTH: 25 MILLIGRAM
     Route: 048
  15. HEPLISAV-B INJ [Concomitant]
     Indication: Product used for unknown indication
     Dosage: 20/0.5ML
     Route: 050
  16. METFORMIN [Concomitant]
     Active Substance: METFORMIN HYDROCHLORIDE
     Indication: Product used for unknown indication
     Dosage: FORM STRENGTH: 500 MILLIGRAM
     Route: 048
  17. APAP/CODEINE TAB [Concomitant]
     Indication: Product used for unknown indication
     Dosage: 300-30MG
     Route: 048
  18. LOSARTAN POT TAB 50MG [Concomitant]
     Indication: Product used for unknown indication
     Dosage: FORM STRENGTH: 50 MILLIGRAM
     Route: 048
  19. AMLODIPINE [Concomitant]
     Active Substance: AMLODIPINE BESYLATE
     Indication: Product used for unknown indication
     Dosage: FORM STRENGTH: 5 MILLIGRAM
     Route: 048
  20. SHINGRIX INJ [Concomitant]
     Indication: Product used for unknown indication
     Dosage: 50/0.5ML
     Route: 050
  21. BOOSTRIX INJ [Concomitant]
     Indication: Product used for unknown indication
     Route: 050

REACTIONS (1)
  - Psoriasis [Unknown]
